FAERS Safety Report 5506230-X (Version None)
Quarter: 2007Q4

REPORT INFORMATION
  Report Type: 
  Country: None (occurrence: None)
  Receive Date: 20071105
  Receipt Date: 20071023
  Transmission Date: 20080405
  Serious: Yes (Hospitalization, Other)
  Sender: FDA-Public Use
  Company Number: CH-ELI_LILLY_AND_COMPANY-CH200710005595

PATIENT
  Age: 17 Year
  Sex: Male

DRUGS (16)
  1. OLANZAPINE [Suspect]
     Dosage: UP TO 15 MG DAILY
     Route: 065
     Dates: start: 20030101, end: 20030101
  2. OLANZAPINE [Suspect]
     Dosage: UNK, UNKNOWN
     Route: 065
     Dates: start: 20041201
  3. OLANZAPINE [Suspect]
     Dosage: 10 MG, DAILY (1/D)
     Route: 065
     Dates: start: 20050101
  4. OLANZAPINE [Suspect]
     Dosage: 15 MG, DAILY (1/D)
     Route: 065
  5. OLANZAPINE [Suspect]
     Dosage: 20 MG, DAILY (1/D)
     Route: 065
  6. LEVOMEPROMAZINE [Concomitant]
     Dosage: 10 MG, 3/D
     Route: 065
  7. LEVOMEPROMAZINE [Concomitant]
     Dosage: 75 MG, DAILY (1/D)
     Route: 065
  8. HALOPERIDOL [Concomitant]
     Dosage: 15 MG, DAILY (1/D)
     Route: 065
  9. BIPERIDEN HYDROCHLORIDE TAB [Concomitant]
     Dosage: UNK, UNKNOWN
     Route: 065
  10. BIPERIDEN HYDROCHLORIDE TAB [Concomitant]
     Dosage: UNK, UNKNOWN
     Route: 065
  11. RISPERIDONE [Concomitant]
     Indication: OBSESSIVE-COMPULSIVE DISORDER
     Dosage: 50 MG, EVERY 15 DAYS
     Route: 030
  12. RISPERIDONE [Concomitant]
     Dosage: 3 MG, DAILY (1/D)
     Route: 048
     Dates: end: 20041201
  13. SERTRALINE [Concomitant]
     Indication: OBSESSIVE-COMPULSIVE DISORDER
     Dosage: 100 MG, DAILY (1/D)
     Route: 065
  14. SERTRALINE [Concomitant]
     Dosage: 50 MG, DAILY (1/D)
     Route: 065
  15. SERTRALINE [Concomitant]
     Dosage: 100 MG, DAILY (1/D)
     Route: 065
     Dates: start: 20050101
  16. CLOZAPINE [Concomitant]
     Dosage: UNK, UNKNOWN
     Route: 065

REACTIONS (5)
  - AGGRESSION [None]
  - BLEPHAROSPASM [None]
  - CONJUNCTIVITIS [None]
  - DRUG INEFFECTIVE [None]
  - DRY EYE [None]
